FAERS Safety Report 11791639 (Version 1)
Quarter: 2015Q4

REPORT INFORMATION
  Report Type: Spontaneous
  Country: US (occurrence: US)
  Receive Date: 20151201
  Receipt Date: 20151201
  Transmission Date: 20160305
  Serious: No
  Sender: FDA-Public Use
  Company Number: CHPA2015US014245

PATIENT
  Age: 90 Year
  Sex: Female

DRUGS (1)
  1. VOLTAREN [Suspect]
     Active Substance: DICLOFENAC SODIUM
     Indication: BURSITIS
     Dosage: 2 G, QD-BID
     Route: 061
     Dates: start: 201511, end: 20151127

REACTIONS (8)
  - Peripheral swelling [Not Recovered/Not Resolved]
  - Hypokinesia [Not Recovered/Not Resolved]
  - Inappropriate schedule of drug administration [Unknown]
  - Contusion [Not Recovered/Not Resolved]
  - Furuncle [Not Recovered/Not Resolved]
  - Product use issue [Unknown]
  - Drug administered at inappropriate site [Unknown]
  - Blister [Not Recovered/Not Resolved]

NARRATIVE: CASE EVENT DATE: 201511
